FAERS Safety Report 17797478 (Version 1)
Quarter: 2020Q2

REPORT INFORMATION
  Report Type: Spontaneous
  Country: US (occurrence: US)
  Receive Date: 20200518
  Receipt Date: 20200518
  Transmission Date: 20200714
  Serious: No
  Sender: FDA-Public Use
  Company Number: US-SA-2020SA127668

PATIENT
  Sex: Male

DRUGS (16)
  1. NEXIUM I.V. [Concomitant]
     Active Substance: ESOMEPRAZOLE SODIUM
  2. SYMBICORT [Concomitant]
     Active Substance: BUDESONIDE\FORMOTEROL FUMARATE DIHYDRATE
  3. MELOXICAM. [Concomitant]
     Active Substance: MELOXICAM
  4. SPIRIVA [Concomitant]
     Active Substance: TIOTROPIUM BROMIDE MONOHYDRATE
  5. DUPIXENT [Suspect]
     Active Substance: DUPILUMAB
     Indication: ILL-DEFINED DISORDER
     Dosage: 300 MG, QOW
     Route: 058
  6. CELEXA [CELECOXIB] [Concomitant]
     Active Substance: CELECOXIB
  7. HYDROXYZINE HCL [Concomitant]
     Active Substance: HYDROXYZINE HYDROCHLORIDE
  8. ALBUTEROL SULFATE. [Concomitant]
     Active Substance: ALBUTEROL SULFATE
  9. ALBUTEROL SULFATE HFA [Concomitant]
     Active Substance: ALBUTEROL SULFATE
  10. SINGULAIR [Concomitant]
     Active Substance: MONTELUKAST SODIUM
  11. DUPIXENT [Suspect]
     Active Substance: DUPILUMAB
     Indication: ASTHMA
  12. VISINE A.C. [Concomitant]
     Active Substance: TETRAHYDROZOLINE HYDROCHLORIDE\ZINC SULFATE
  13. LORATADINE. [Concomitant]
     Active Substance: LORATADINE
  14. TYLENOL [Concomitant]
     Active Substance: ACETAMINOPHEN
  15. FLONASE ALLERGY RELIEF [Concomitant]
     Active Substance: FLUTICASONE PROPIONATE
  16. PROVENTIL HFA [SALBUTAMOL] [Concomitant]

REACTIONS (8)
  - Pruritus [Unknown]
  - Skin exfoliation [Unknown]
  - Skin haemorrhage [Unknown]
  - Skin fissures [Unknown]
  - Therapy cessation [Unknown]
  - Sleep disorder [Unknown]
  - Skin weeping [Unknown]
  - Dry skin [Unknown]
